FAERS Safety Report 7640458-8 (Version None)
Quarter: 2011Q3

REPORT INFORMATION
  Report Type: 
  Country: None (occurrence: None)
  Receive Date: 20110728
  Receipt Date: 20110719
  Transmission Date: 20111222
  Serious: No
  Sender: FDA-Public Use
  Company Number: US-BIOGENIDEC-2010BI044440

PATIENT
  Age: 38 Year
  Sex: Female

DRUGS (2)
  1. BACLOFEN [Concomitant]
     Indication: MUSCULOSKELETAL STIFFNESS
  2. TYSABRI [Suspect]
     Indication: MULTIPLE SCLEROSIS
     Route: 042
     Dates: start: 20101214

REACTIONS (5)
  - MUSCULAR WEAKNESS [None]
  - FEELING OF DESPAIR [None]
  - FATIGUE [None]
  - HYPOAESTHESIA [None]
  - DRUG INEFFECTIVE [None]
